FAERS Safety Report 5900796-3 (Version None)
Quarter: 2008Q3

REPORT INFORMATION
  Report Type: 
  Country: None (occurrence: None)
  Receive Date: 20080929
  Receipt Date: 20080923
  Transmission Date: 20090109
  Serious: Yes (Hospitalization)
  Sender: FDA-Public Use
  Company Number: US-JNJFOC-20080905473

PATIENT
  Age: 12 Year

DRUGS (3)
  1. NESIRITIDE [Suspect]
     Indication: CARDIAC FAILURE
     Route: 042
  2. DOBUTAMINE HCL [Concomitant]
     Indication: CARDIAC FAILURE
  3. FUROSEMIDE [Concomitant]
     Indication: CARDIAC FAILURE

REACTIONS (3)
  - BLOOD CREATININE INCREASED [None]
  - CONTINUOUS HAEMODIAFILTRATION [None]
  - DIALYSIS [None]
